FAERS Safety Report 20592863 (Version 2)
Quarter: 2022Q2

REPORT INFORMATION
  Report Type: Spontaneous
  Country: JP (occurrence: JP)
  Receive Date: 20220315
  Receipt Date: 20220623
  Transmission Date: 20220721
  Serious: Yes (Other)
  Sender: FDA-Public Use
  Company Number: JP-SA-2022SA082143

PATIENT
  Age: 23 Year
  Sex: Male

DRUGS (7)
  1. DUPIXENT [Suspect]
     Active Substance: DUPILUMAB
     Indication: Dermatitis atopic
     Dosage: UNK UNK, QOW
     Route: 058
     Dates: start: 20220114
  2. RUPAFIN [Concomitant]
     Active Substance: RUPATADINE FUMARATE
     Indication: Dermatitis atopic
     Dosage: 10 MG, QD
     Route: 048
     Dates: start: 20210428
  3. PREDNISOLONE VALERATE ACETATE [Concomitant]
     Active Substance: PREDNISOLONE VALERATE ACETATE
     Indication: Dermatitis atopic
     Dosage: UNK UNK, BID
     Route: 061
     Dates: start: 20210706
  4. BETAMETHASONE DIPROPIONATE [Concomitant]
     Active Substance: BETAMETHASONE DIPROPIONATE
     Indication: Dermatitis atopic
     Dosage: 1 TO 2 TIMES A DAY
     Route: 061
     Dates: start: 20111024
  5. GLYCOSAMINOGLYCANS [Concomitant]
     Active Substance: GLYCOSAMINOGLYCANS
     Indication: Dermatitis atopic
     Dosage: 1 TO 2 TIMES A DAY
     Route: 061
     Dates: start: 20090218
  6. HEPARINOID [Concomitant]
     Indication: Dermatitis atopic
     Dosage: 1 TO 2 TIMES
     Route: 061
     Dates: start: 20111024
  7. PETROLATUM [Concomitant]
     Active Substance: PETROLATUM
     Indication: Dermatitis atopic
     Dosage: UNK UNK, BID
     Route: 061
     Dates: start: 20211001

REACTIONS (1)
  - Eczema herpeticum [Recovering/Resolving]

NARRATIVE: CASE EVENT DATE: 20220101
